FAERS Safety Report 5938774-0 (Version None)
Quarter: 2008Q4

REPORT INFORMATION
  Report Type: 
  Country: None (occurrence: None)
  Receive Date: 20081103
  Receipt Date: 20081015
  Transmission Date: 20090506
  Serious: No
  Sender: FDA-Public Use
  Company Number: US-BAYER-200832973NA

PATIENT

DRUGS (1)
  1. ULTRAVIST 300 [Suspect]
     Indication: SCAN BRAIN
     Dates: start: 20080827, end: 20080827

REACTIONS (1)
  - DIZZINESS [None]
